FAERS Safety Report 23193027 (Version 1)
Quarter: 2023Q4

REPORT INFORMATION
  Report Type: Spontaneous
  Country: US (occurrence: US)
  Receive Date: 20231116
  Receipt Date: 20231116
  Transmission Date: 20240110
  Serious: No
  Sender: FDA-Public Use
  Company Number: US-JNJFOC-20231121816

PATIENT
  Age: 3 Decade
  Sex: Male
  Weight: 104.42 kg

DRUGS (2)
  1. RISPERDAL [Suspect]
     Active Substance: RISPERIDONE
     Indication: Schizophrenia
     Route: 065
     Dates: start: 2019, end: 202303
  2. INVEGA [Concomitant]
     Active Substance: PALIPERIDONE
     Indication: Product used for unknown indication

REACTIONS (7)
  - Gynaecomastia [Unknown]
  - Dyskinesia [Unknown]
  - Anxiety [Unknown]
  - Amnesia [Unknown]
  - Throat tightness [Unknown]
  - Heart rate increased [Unknown]
  - Somnolence [Unknown]
